FAERS Safety Report 8923735 (Version 2)
Quarter: 2013Q1

REPORT INFORMATION
  Report Type: Spontaneous
  Country: GT (occurrence: GT)
  Receive Date: 20121126
  Receipt Date: 20130212
  Transmission Date: 20140127
  Serious: Yes (Hospitalization)
  Sender: FDA-Public Use
  Company Number: GT-NOVOPROD-364504

PATIENT
  Age: 66 Year
  Sex: Male

DRUGS (1)
  1. NOVOMIX 30 [Suspect]
     Indication: TYPE 2 DIABETES MELLITUS
     Dosage: 30 IU, QID
     Route: 065
     Dates: start: 20120821

REACTIONS (2)
  - Diabetic foot infection [Recovered/Resolved]
  - Diabetes mellitus inadequate control [Unknown]
